FAERS Safety Report 22847868 (Version 5)
Quarter: 2025Q2

REPORT INFORMATION
  Report Type: Spontaneous
  Country: US (occurrence: US)
  Receive Date: 20230822
  Receipt Date: 20250408
  Transmission Date: 20250717
  Serious: Yes (Hospitalization, Other)
  Sender: TAKEDA
  Company Number: US-TAKEDA-2023TUS079611

PATIENT
  Sex: Female

DRUGS (14)
  1. ENTYVIO [Suspect]
     Active Substance: VEDOLIZUMAB
     Indication: Colitis ulcerative
  2. ENTYVIO [Suspect]
     Active Substance: VEDOLIZUMAB
  3. ENTYVIO [Suspect]
     Active Substance: VEDOLIZUMAB
     Dosage: 300 MILLIGRAM, Q6WEEKS
  4. DIPHENHYDRAMINE [Suspect]
     Active Substance: DIPHENHYDRAMINE
     Indication: Product used for unknown indication
  5. MESALAMINE [Concomitant]
     Active Substance: MESALAMINE
  6. BENADRYL [Concomitant]
     Active Substance: DIPHENHYDRAMINE HYDROCHLORIDE
     Indication: Hypersensitivity
  7. Tramadol hcl ER [Concomitant]
  8. DICYCLOMINE HYDROCHLORIDE [Concomitant]
     Active Substance: DICYCLOMINE HYDROCHLORIDE
  9. AMITRIPTYLINE HYDROCHLORIDE [Concomitant]
     Active Substance: AMITRIPTYLINE HYDROCHLORIDE
  10. LACOSAMIDE [Concomitant]
     Active Substance: LACOSAMIDE
  11. HYDROCHLOROTHIAZIDE [Concomitant]
     Active Substance: HYDROCHLOROTHIAZIDE
  12. HYDROCORTISONE [Concomitant]
     Active Substance: HYDROCORTISONE
  13. HYDROCORTONE [Concomitant]
     Active Substance: HYDROCORTISONE
  14. MONTELUKAST SODIUM [Concomitant]
     Active Substance: MONTELUKAST SODIUM

REACTIONS (9)
  - Haemorrhage [Unknown]
  - Diarrhoea [Unknown]
  - Constipation [Unknown]
  - Drug hypersensitivity [Unknown]
  - Somnolence [Unknown]
  - Infusion site pruritus [Unknown]
  - Infusion site pain [Unknown]
  - Nausea [Unknown]
  - Pruritus [Unknown]
